FAERS Safety Report 4752134-X (Version None)
Quarter: 2005Q3

REPORT INFORMATION
  Report Type: 
  Country: None (occurrence: None)
  Receive Date: 20050825
  Receipt Date: 20050809
  Transmission Date: 20060218
  Serious: Yes (Life-Threatening, Hospitalization)
  Sender: FDA-Public Use
  Company Number: US-AMGEN-US146436

PATIENT
  Sex: Male
  Weight: 103.1 kg

DRUGS (7)
  1. ENBREL [Suspect]
     Indication: RHEUMATOID ARTHRITIS
     Route: 058
     Dates: start: 19990101, end: 20050601
  2. METHOTREXATE [Concomitant]
  3. AZULFIDINE [Concomitant]
  4. CELEBREX [Concomitant]
  5. TYLENOL [Concomitant]
  6. ACTONEL [Concomitant]
  7. FERROUS SULFATE [Concomitant]

REACTIONS (4)
  - ANTINUCLEAR ANTIBODY POSITIVE [None]
  - CARDIAC TAMPONADE [None]
  - DOUBLE STRANDED DNA ANTIBODY [None]
  - PERICARDIAL EFFUSION [None]
